FAERS Safety Report 10599025 (Version 2)
Quarter: 2014Q4

REPORT INFORMATION
  Report Type: Spontaneous
  Country: DE (occurrence: DE)
  Receive Date: 20141121
  Receipt Date: 20141130
  Transmission Date: 20150529
  Serious: Yes (Hospitalization)
  Sender: FDA-Public Use
  Company Number: PHHY2014DE150339

PATIENT
  Age: 41 Year
  Sex: Female
  Weight: 46 kg

DRUGS (6)
  1. VALPROATE SODIUM. [Suspect]
     Active Substance: VALPROATE SODIUM
     Indication: SEIZURE
     Route: 065
  2. MESALAZINE [Concomitant]
     Active Substance: MESALAMINE
     Indication: PRODUCT USED FOR UNKNOWN INDICATION
     Route: 065
  3. METAMIZOLE [Suspect]
     Active Substance: METAMIZOLE
     Indication: PRODUCT USED FOR UNKNOWN INDICATION
     Route: 065
  4. MIRTAZAPINE. [Suspect]
     Active Substance: MIRTAZAPINE
     Indication: PRODUCT USED FOR UNKNOWN INDICATION
     Route: 065
  5. IMMUNOGLOBULINS [Concomitant]
     Active Substance: HUMAN IMMUNOGLOBULIN G
     Indication: PRODUCT USED FOR UNKNOWN INDICATION
     Dosage: 20 G, UNK
     Route: 065
  6. LEVETIRACETAM. [Concomitant]
     Active Substance: LEVETIRACETAM
     Indication: PRODUCT USED FOR UNKNOWN INDICATION
     Route: 065

REACTIONS (24)
  - Diarrhoea [Unknown]
  - Crying [Unknown]
  - Incontinence [Unknown]
  - Clostridial infection [Unknown]
  - Somnolence [Unknown]
  - Cognitive disorder [Unknown]
  - Malaise [Unknown]
  - Cardiac arrest [Unknown]
  - Encephalopathy [Unknown]
  - Pyrexia [Unknown]
  - Drug ineffective [Unknown]
  - Chromaturia [Unknown]
  - Porphyria acute [Unknown]
  - Dysphagia [Unknown]
  - Hallucination [Unknown]
  - Unresponsive to stimuli [Unknown]
  - Areflexia [Unknown]
  - Seizure [Unknown]
  - Vomiting [Unknown]
  - Motor dysfunction [Unknown]
  - Quadriplegia [Unknown]
  - Progressive muscular atrophy [Unknown]
  - Central nervous system lesion [Unknown]
  - Tachycardia [Unknown]
